FAERS Safety Report 4603205-X (Version None)
Quarter: 2005Q1

REPORT INFORMATION
  Report Type: 
  Country: None (occurrence: None)
  Receive Date: 20050307
  Receipt Date: 20050221
  Transmission Date: 20050727
  Serious: Yes (Life-Threatening, Hospitalization)
  Sender: FDA-Public Use
  Company Number: 2005034567

PATIENT
  Age: 36 Year
  Sex: Female

DRUGS (6)
  1. FLUCONAZOLE [Suspect]
     Indication: OESOPHAGEAL CANDIDIASIS
     Dosage: 100 MG (1 IN 1 D), INTRAVENOUS
     Route: 042
     Dates: start: 20040801, end: 20050101
  2. ANTIBIOTICS (ANTIBIOTICS) [Concomitant]
  3. ISONIAZID [Concomitant]
  4. RIFABUTIN (RIFABUTIN) [Concomitant]
  5. BACTRIM [Concomitant]
  6. MIANSERIN (MIANSERIN) [Concomitant]

REACTIONS (3)
  - HEPATIC ENCEPHALOPATHY [None]
  - HEPATITIS FULMINANT [None]
  - PROTHROMBIN LEVEL ABNORMAL [None]
